FAERS Safety Report 6175334-3 (Version None)
Quarter: 2009Q2

REPORT INFORMATION
  Report Type: 
  Country: None (occurrence: None)
  Receive Date: 20090429
  Receipt Date: 20090414
  Transmission Date: 20091009
  Serious: Yes (Hospitalization)
  Sender: FDA-Public Use
  Company Number: 8044805

PATIENT
  Age: 28 Year
  Sex: Male
  Weight: 59 kg

DRUGS (13)
  1. CIMZIA [Suspect]
     Indication: CROHN'S DISEASE
     Dosage: 400 MG SC
     Route: 058
     Dates: start: 20081101
  2. METHADONE HCL [Suspect]
     Indication: PAIN
     Dosage: 20 MG 4/D PO
     Route: 048
  3. METHADONE HCL [Suspect]
     Indication: PAIN
     Dosage: 200 MG ONCE PO
     Route: 048
     Dates: start: 20090401, end: 20090401
  4. FOLIC ACID [Concomitant]
  5. PROMETHAZINE [Concomitant]
  6. MIRAPEX [Concomitant]
  7. CELEBREX [Concomitant]
  8. PREVACID [Concomitant]
  9. PRAZSOIN HCL [Concomitant]
  10. GABAPENTIN [Concomitant]
  11. PREDNISONE [Concomitant]
  12. ACTONEL [Concomitant]
  13. MEDICAL MARIJUANA [Concomitant]

REACTIONS (3)
  - COLONIC FISTULA [None]
  - OVERDOSE [None]
  - TOOTH INFECTION [None]
